FAERS Safety Report 6754199-2 (Version None)
Quarter: 2010Q2

REPORT INFORMATION
  Report Type: 
  Country: None (occurrence: None)
  Receive Date: 20100601
  Receipt Date: 20100517
  Transmission Date: 20101027
  Serious: Yes (Hospitalization)
  Sender: FDA-Public Use
  Company Number: 230012K09CAN

PATIENT
  Age: 62 Year
  Sex: Female

DRUGS (11)
  1. REBIF [Suspect]
     Indication: RELAPSING-REMITTING MULTIPLE SCLEROSIS
     Dosage: 44 MCG, 3 IN 1 WK
     Dates: start: 20061220, end: 20100201
  2. SIMVASTATIN [Concomitant]
  3. SYNTHROID [Concomitant]
  4. PANTOPRAZOLE SODIUM [Concomitant]
  5. EFFEXOR [Concomitant]
  6. DIOVAN [Concomitant]
  7. PERINDOPRIL ERBUMINE [Concomitant]
  8. FLONASE [Concomitant]
  9. SALBUTAMOL (SALBUTAMOL) [Concomitant]
  10. ASPIRIN [Concomitant]
  11. COTAZYN ECS (NORTASE) [Concomitant]

REACTIONS (11)
  - CONDITION AGGRAVATED [None]
  - DECREASED APPETITE [None]
  - DEHYDRATION [None]
  - DIARRHOEA [None]
  - DRUG INEFFECTIVE [None]
  - DRUG SPECIFIC ANTIBODY PRESENT [None]
  - HALLUCINATION [None]
  - HYPERTENSION [None]
  - HYPOTENSION [None]
  - MULTIPLE SCLEROSIS [None]
  - THYROID FUNCTION TEST ABNORMAL [None]
